FAERS Safety Report 8091487-4 (Version None)
Quarter: 2012Q1

REPORT INFORMATION
  Report Type: 
  Country: None (occurrence: None)
  Receive Date: 20120129
  Receipt Date: 20111115
  Transmission Date: 20120608
  Serious: No
  Sender: FDA-Public Use
  Company Number: US-ABBOTT-11P-163-0874103-00

PATIENT
  Sex: Female
  Weight: 67.192 kg

DRUGS (2)
  1. PLAQUENIL [Concomitant]
     Indication: RHEUMATOID ARTHRITIS
  2. HUMIRA [Suspect]
     Indication: RHEUMATOID ARTHRITIS
     Dates: start: 20110301, end: 20110901

REACTIONS (6)
  - MIGRAINE [None]
  - ACTIVITIES OF DAILY LIVING IMPAIRED [None]
  - JOINT SWELLING [None]
  - PAIN IN EXTREMITY [None]
  - FEELING ABNORMAL [None]
  - NAUSEA [None]
